FAERS Safety Report 14609544 (Version 1)
Quarter: 2018Q1

REPORT INFORMATION
  Report Type: Spontaneous
  Country: US (occurrence: US)
  Receive Date: 20180307
  Receipt Date: 20180307
  Transmission Date: 20180509
  Serious: No
  Sender: FDA-Public Use
  Company Number: US-ALLERGAN-1729067US

PATIENT
  Sex: Female

DRUGS (1)
  1. VIIBRYD [Suspect]
     Active Substance: VILAZODONE HYDROCHLORIDE
     Indication: PRODUCT USED FOR UNKNOWN INDICATION
     Dosage: UNK

REACTIONS (11)
  - Gastrointestinal disorder [Unknown]
  - Feeling abnormal [Unknown]
  - Pain [Unknown]
  - Dyskinesia [Unknown]
  - Palpitations [Unknown]
  - Influenza like illness [Unknown]
  - Adverse event [Unknown]
  - Muscle twitching [Unknown]
  - Cerebral disorder [Unknown]
  - Nervousness [Unknown]
  - Diarrhoea [Unknown]
